FAERS Safety Report 6693056-7 (Version None)
Quarter: 2010Q2

REPORT INFORMATION
  Report Type: 
  Country: None (occurrence: None)
  Receive Date: 20100422
  Receipt Date: 20100412
  Transmission Date: 20101027
  Serious: No
  Sender: FDA-Public Use
  Company Number: US-ROXANE LABORATORIES, INC.-2010-RO-00454RO

PATIENT
  Sex: Male

DRUGS (9)
  1. LITHIUM CARBONATE [Suspect]
  2. LANTUS [Suspect]
     Indication: DIABETES MELLITUS
     Route: 058
     Dates: start: 20090901
  3. LANTUS [Suspect]
     Route: 058
     Dates: start: 20090101
  4. LANTUS [Suspect]
     Route: 058
  5. LISINOPRIL [Concomitant]
  6. HYDROCHLOROTHIAZIDE [Concomitant]
  7. JANUVIA [Concomitant]
  8. METFORMIN [Concomitant]
     Indication: DIABETES MELLITUS
     Dates: end: 20090101
  9. GLIPIZIDE [Concomitant]
     Indication: DIABETES MELLITUS

REACTIONS (8)
  - BLOOD GLUCOSE INCREASED [None]
  - CREATININE RENAL CLEARANCE INCREASED [None]
  - DEHYDRATION [None]
  - DIABETES MELLITUS INADEQUATE CONTROL [None]
  - DRUG INTERACTION [None]
  - DRY MOUTH [None]
  - THERAPEUTIC AGENT TOXICITY [None]
  - WEIGHT INCREASED [None]
